FAERS Safety Report 6997124-1 (Version None)
Quarter: 2010Q3

REPORT INFORMATION
  Report Type: 
  Country: None (occurrence: None)
  Receive Date: 20100918
  Receipt Date: 20090901
  Transmission Date: 20110219
  Serious: No
  Sender: FDA-Public Use
  Company Number: US-WYE-H10813709

PATIENT
  Sex: Female
  Weight: 104.42 kg

DRUGS (9)
  1. PRISTIQ [Suspect]
     Indication: BIPOLAR I DISORDER
     Route: 048
     Dates: start: 20090401
  2. VITAMIN D [Concomitant]
  3. HUMULIN R [Concomitant]
  4. LISINOPRIL [Concomitant]
  5. PHENYLTOLOXAMINE [Concomitant]
  6. LAMOTRIGINE [Concomitant]
  7. ZOLPIDEM [Concomitant]
  8. XANAX [Concomitant]
  9. PROZAC [Concomitant]

REACTIONS (3)
  - DECREASED APPETITE [None]
  - HYPERHIDROSIS [None]
  - MYALGIA [None]
